FAERS Safety Report 8287392-0 (Version None)
Quarter: 2012Q2

REPORT INFORMATION
  Report Type: 
  Country: None (occurrence: None)
  Receive Date: 20120416
  Receipt Date: 20120411
  Transmission Date: 20120825
  Serious: Yes (Hospitalization)
  Sender: FDA-Public Use
  Company Number: US-PFIZER INC-2012090678

PATIENT
  Sex: Female

DRUGS (2)
  1. RELPAX [Suspect]
     Indication: MIGRAINE
     Dosage: 40MG
     Route: 048
  2. RELPAX [Suspect]
     Dosage: UNK
     Route: 048

REACTIONS (2)
  - THROAT TIGHTNESS [None]
  - PAIN IN EXTREMITY [None]
